FAERS Safety Report 9476659 (Version 1)
Quarter: 2013Q3

REPORT INFORMATION
  Report Type: Spontaneous
  Country: US (occurrence: US)
  Receive Date: 20130826
  Receipt Date: 20130826
  Transmission Date: 20140515
  Serious: No
  Sender: FDA-Public Use
  Company Number: US-BRISTOL-MYERS SQUIBB COMPANY-18782904

PATIENT
  Age: 82 Year
  Sex: Male

DRUGS (2)
  1. KENALOG INJ [Suspect]
     Indication: LOWER RESPIRATORY TRACT INFECTION
  2. KENALOG INJ [Suspect]
     Indication: COUGH

REACTIONS (1)
  - Drug ineffective [Unknown]
